FAERS Safety Report 23344660 (Version 1)
Quarter: 2023Q4

REPORT INFORMATION
  Report Type: Spontaneous
  Country: US (occurrence: None)
  Receive Date: 20231228
  Receipt Date: 20231228
  Transmission Date: 20240109
  Serious: No
  Sender: FDA-Public Use
  Company Number: 2023A294626

PATIENT

DRUGS (1)
  1. PRILOSEC OTC [Suspect]
     Active Substance: OMEPRAZOLE MAGNESIUM
     Indication: Gastrooesophageal reflux disease
     Dosage: UNK
     Route: 048

REACTIONS (4)
  - Gastrooesophageal reflux disease [Unknown]
  - Condition aggravated [Unknown]
  - Abdominal pain upper [Unknown]
  - Drug ineffective for unapproved indication [Unknown]
